FAERS Safety Report 7968142-1 (Version None)
Quarter: 2011Q4

REPORT INFORMATION
  Report Type: 
  Country: None (occurrence: None)
  Receive Date: 20111121
  Receipt Date: 20110922
  Transmission Date: 20120403
  Serious: No
  Sender: FDA-Public Use
  Company Number: 1000024162

PATIENT
  Age: 51 Year
  Sex: Male

DRUGS (8)
  1. GABAPENTIN [Concomitant]
  2. TRAZODONE (TRAZODONE) (TRAZODONE) [Concomitant]
  3. VIIBRYD [Suspect]
     Indication: ANXIETY
     Dosage: 10 MG (10 MG, 1 IN 1 D), ORAL 15 MG (15 MG, 1 IN 1 D), ORAL 35 MG (35 MG, 1 IN 1 D), ORAL
     Route: 048
     Dates: start: 20110919, end: 20110920
  4. VIIBRYD [Suspect]
     Indication: DEPRESSION
     Dosage: 10 MG (10 MG, 1 IN 1 D), ORAL 15 MG (15 MG, 1 IN 1 D), ORAL 35 MG (35 MG, 1 IN 1 D), ORAL
     Route: 048
     Dates: start: 20110919, end: 20110920
  5. VIIBRYD [Suspect]
     Indication: ANXIETY
     Dosage: 10 MG (10 MG, 1 IN 1 D), ORAL 15 MG (15 MG, 1 IN 1 D), ORAL 35 MG (35 MG, 1 IN 1 D), ORAL
     Route: 048
     Dates: start: 20110918, end: 20110918
  6. VIIBRYD [Suspect]
     Indication: DEPRESSION
     Dosage: 10 MG (10 MG, 1 IN 1 D), ORAL 15 MG (15 MG, 1 IN 1 D), ORAL 35 MG (35 MG, 1 IN 1 D), ORAL
     Route: 048
     Dates: start: 20110918, end: 20110918
  7. VIIBRYD [Suspect]
     Indication: ANXIETY
     Dosage: 10 MG (10 MG, 1 IN 1 D), ORAL 15 MG (15 MG, 1 IN 1 D), ORAL 35 MG (35 MG, 1 IN 1 D), ORAL
     Route: 048
     Dates: start: 20110921
  8. VIIBRYD [Suspect]
     Indication: DEPRESSION
     Dosage: 10 MG (10 MG, 1 IN 1 D), ORAL 15 MG (15 MG, 1 IN 1 D), ORAL 35 MG (35 MG, 1 IN 1 D), ORAL
     Route: 048
     Dates: start: 20110921

REACTIONS (4)
  - RESTLESSNESS [None]
  - SOMNOLENCE [None]
  - NAUSEA [None]
  - DIARRHOEA [None]
